FAERS Safety Report 8844316 (Version 1)
Quarter: 2012Q4

REPORT INFORMATION
  Report Type: Report from Study
  Country: CA (occurrence: CA)
  Receive Date: 20121017
  Receipt Date: 20121017
  Transmission Date: 20130627
  Serious: Yes (Hospitalization)
  Sender: FDA-Public Use
  Company Number: CA-JNJFOC-20121004978

PATIENT
  Age: 28 Year
  Sex: Female
  Weight: 84.9 kg

DRUGS (6)
  1. REMICADE [Suspect]
     Indication: CROHN^S DISEASE
     Dates: start: 20111107
  2. CALCIUM [Concomitant]
     Route: 065
  3. VITAMIN D [Concomitant]
     Route: 065
  4. METOCLOPRAMIDE [Concomitant]
     Route: 065
  5. TYLENOL [Concomitant]
     Dosage: prn- as necessary
     Route: 065
  6. IMURAN [Concomitant]
     Route: 065

REACTIONS (3)
  - Colitis [Recovered/Resolved]
  - Haemorrhoids [Recovered/Resolved]
  - Crohn^s disease [Recovered/Resolved]
